FAERS Safety Report 13489255 (Version 1)
Quarter: 2017Q2

REPORT INFORMATION
  Report Type: Spontaneous
  Country: US (occurrence: US)
  Receive Date: 20170427
  Receipt Date: 20170427
  Transmission Date: 20170830
  Serious: No
  Sender: FDA-Public Use
  Company Number: US-JNJFOC-20170418928

PATIENT
  Age: 72 Year
  Sex: Female
  Weight: 81.65 kg

DRUGS (1)
  1. TYLENOL EXTRA STRENGTH [Suspect]
     Active Substance: ACETAMINOPHEN
     Indication: NASOPHARYNGITIS
     Dosage: 2 X DAY FOR 4 DAYS
     Route: 048
     Dates: end: 20170415

REACTIONS (3)
  - Incorrect dose administered [Unknown]
  - Laceration [Not Recovered/Not Resolved]
  - Product packaging issue [Unknown]
